FAERS Safety Report 8666300 (Version 2)
Quarter: 2013Q1

REPORT INFORMATION
  Report Type: Spontaneous
  Country: BR (occurrence: BR)
  Receive Date: 20120716
  Receipt Date: 20130130
  Transmission Date: 20140127
  Serious: Yes (Death, Hospitalization)
  Sender: FDA-Public Use
  Company Number: PHHY2012BR060096

PATIENT
  Age: 84 Year
  Sex: Male

DRUGS (10)
  1. DIOVAN [Suspect]
     Indication: BLOOD PRESSURE
     Dosage: UNK UKN, UNK
  2. PANTOL [Concomitant]
     Dosage: UNK UKN, QD
  3. LUFTAL [Concomitant]
     Dosage: 60 U, Q6H
  4. FOLIC ACID [Concomitant]
     Dosage: 5 MG, Q12H
  5. LEXAPRO [Concomitant]
     Dosage: 10 MG, DAILY
  6. SEROQUEL [Concomitant]
     Dosage: 50 MG, QD (NIGHT)
  7. MAGNESIUM PIDOLATE [Concomitant]
     Dosage: 1 DF, DAILY
  8. MINERAL OIL EMULSION [Concomitant]
     Dosage: 30 ML, TID
  9. TAMSULOSIN HYDROCHLORIDE [Concomitant]
     Dosage: 0.4 MG, QD AT NIGHT
  10. SELOZOK [Concomitant]
     Dosage: 50 MG, QD

REACTIONS (4)
  - Death [Fatal]
  - Cerebrovascular accident [Unknown]
  - Gastrointestinal disorder [Unknown]
  - Renal disorder [Unknown]
